FAERS Safety Report 14869395 (Version 2)
Quarter: 2018Q2

REPORT INFORMATION
  Report Type: Report from Study
  Country: US (occurrence: US)
  Receive Date: 20180509
  Receipt Date: 20180516
  Transmission Date: 20180711
  Serious: Yes (Death, Hospitalization, Other)
  Sender: FDA-Public Use
  Company Number: US-ROCHE-2012424

PATIENT
  Age: 53 Year
  Sex: Female

DRUGS (50)
  1. ATEZOLIZUMAB. [Suspect]
     Active Substance: ATEZOLIZUMAB
     Route: 042
     Dates: start: 20171214, end: 20171214
  2. ZOFRAN [Concomitant]
     Active Substance: ONDANSETRON HYDROCHLORIDE
     Route: 042
     Dates: start: 20171219, end: 20171222
  3. FENTANYL. [Concomitant]
     Active Substance: FENTANYL
     Indication: PAIN
     Route: 023
     Dates: start: 20170818
  4. MEROPENEM. [Concomitant]
     Active Substance: MEROPENEM
     Indication: PNEUMONIA
     Route: 042
     Dates: start: 20170824, end: 20170831
  5. AUGMENTIN [Concomitant]
     Active Substance: AMOXICILLIN\CLAVULANATE POTASSIUM
     Indication: PROPHYLAXIS
     Route: 048
     Dates: start: 20170913
  6. ATEZOLIZUMAB. [Suspect]
     Active Substance: ATEZOLIZUMAB
     Dosage: START TIME OF INFUSION 14:08, END TIME 15:09 ON 02/SEP/2017 AND 25/SEP/2017
     Route: 042
  7. ETOPOSIDE PHOSPHATE [Suspect]
     Active Substance: ETOPOSIDE PHOSPHATE
     Dosage: START TIME OF INFUSION 11:45, END TIME 12:49 ON 02/SEP/2017 AND 25/SEP/2017?DOSE: 158 UNIT NOT REPOR
     Route: 042
  8. ETOPOSIDE PHOSPHATE [Suspect]
     Active Substance: ETOPOSIDE PHOSPHATE
     Dosage: DOSE 150 UNIT NOT REPORTED. INDUCTION DAY 3 CYCLE 4.?START TIME INFUSION 14:16, END TIME INFUSION 15
     Route: 042
     Dates: start: 20171117
  9. EMLA [Concomitant]
     Active Substance: LIDOCAINE\PRILOCAINE
     Indication: PROPHYLAXIS
     Route: 061
     Dates: start: 20170818
  10. MEROPENEM. [Concomitant]
     Active Substance: MEROPENEM
     Route: 042
     Dates: start: 20170905
  11. VANCOMYCIN [Concomitant]
     Active Substance: VANCOMYCIN
     Route: 065
     Dates: start: 20171004
  12. FUROSEMIDE. [Concomitant]
     Active Substance: FUROSEMIDE
     Indication: PROPHYLAXIS
     Route: 042
     Dates: start: 20170904
  13. PANTOPRAZOLE [Concomitant]
     Active Substance: PANTOPRAZOLE
     Indication: GASTROOESOPHAGEAL REFLUX DISEASE
     Route: 042
     Dates: start: 20170904
  14. MAGNESIUM SULFATE. [Concomitant]
     Active Substance: MAGNESIUM SULFATE
     Route: 042
     Dates: start: 20170903
  15. LEVAQUIN [Concomitant]
     Active Substance: LEVOFLOXACIN
     Indication: INFECTION PROPHYLAXIS
     Route: 042
     Dates: start: 20180123, end: 20180127
  16. CARBOPLATIN. [Suspect]
     Active Substance: CARBOPLATIN
     Dosage: PLANNED DOSE WAS 437 MG, DAY1 CYCLE4 AUC 5?START TIME OF INFUSION 15:21, END TIME OF INFUSION 15:56
     Route: 042
     Dates: start: 20171115
  17. SODIUM CHLORIDE. [Concomitant]
     Active Substance: SODIUM CHLORIDE
     Route: 042
     Dates: start: 20171219, end: 20171222
  18. LEVAQUIN [Concomitant]
     Active Substance: LEVOFLOXACIN
     Route: 042
     Dates: start: 20171219, end: 20171221
  19. LORAZEPAM. [Concomitant]
     Active Substance: LORAZEPAM
     Indication: ANXIETY
     Route: 042
     Dates: start: 20180130
  20. ZOFRAN [Concomitant]
     Active Substance: ONDANSETRON HYDROCHLORIDE
     Indication: PROPHYLAXIS
     Route: 048
     Dates: start: 20170902
  21. DILAUDID [Concomitant]
     Active Substance: HYDROMORPHONE HYDROCHLORIDE
     Indication: PAIN
     Route: 048
     Dates: start: 20170818
  22. ACYCLOVIR. [Concomitant]
     Active Substance: ACYCLOVIR
     Indication: PROPHYLAXIS
     Route: 042
     Dates: start: 20170905
  23. LIDOCAINE. [Concomitant]
     Active Substance: LIDOCAINE
     Route: 042
     Dates: start: 20170905
  24. MORPHINE [Concomitant]
     Active Substance: MORPHINE
     Indication: CANCER PAIN
     Route: 042
     Dates: start: 20180124
  25. BLINDED TRILACICLIB [Suspect]
     Active Substance: TRILACICLIB
     Dosage: START TIME OF INFUSION 10:56, END TIME 11:27 ON 02/SEP/2017 AND 25/SEP/2017?DATE OF MOST RECENT DOSE
     Route: 042
  26. CARBOPLATIN. [Suspect]
     Active Substance: CARBOPLATIN
     Dosage: START TIME OF INFUSION 13:18, END TIME 13:52?DOSE: 642?STARTED ON 02/SEP/2017
     Route: 042
  27. DECADRON [Concomitant]
     Active Substance: DEXAMETHASONE
     Route: 065
     Dates: start: 20170902
  28. METHYLPREDNISOLONE. [Concomitant]
     Active Substance: METHYLPREDNISOLONE
     Route: 042
     Dates: start: 20180123
  29. DOXYCYCLINE. [Concomitant]
     Active Substance: DOXYCYCLINE
     Indication: INFECTION PROPHYLAXIS
     Route: 048
     Dates: start: 20180130
  30. TRAZODONE [Concomitant]
     Active Substance: TRAZODONE HYDROCHLORIDE
     Route: 048
     Dates: start: 20171219, end: 20171222
  31. ATEZOLIZUMAB. [Suspect]
     Active Substance: ATEZOLIZUMAB
     Dosage: DAY 1, CYCLE 4?START TIME 15:57, END TIME 16:57
     Route: 042
     Dates: start: 20171115
  32. BLINDED TRILACICLIB [Suspect]
     Active Substance: TRILACICLIB
     Dosage: INDUCTION DAY 3 CYCLE 4.?START TIME INFUSION 13:28, END TIME INFUSION 13:44
     Route: 042
     Dates: start: 20171117
  33. ETOPOSIDE PHOSPHATE [Suspect]
     Active Substance: ETOPOSIDE PHOSPHATE
     Indication: SMALL CELL LUNG CANCER
     Dosage: INDUCTION DAY 1 CYCLE 1?START TIME INFUSION 11:45, END TIME INFUSION 12:49
     Route: 042
     Dates: start: 20170902
  34. MEROPENEM. [Concomitant]
     Active Substance: MEROPENEM
     Route: 042
     Dates: start: 20180123, end: 20180127
  35. ENOXAPARIN [Concomitant]
     Active Substance: ENOXAPARIN
     Indication: PROPHYLAXIS
     Route: 058
     Dates: start: 20170904
  36. BUSPAR [Concomitant]
     Active Substance: BUSPIRONE HYDROCHLORIDE
     Indication: ANXIETY
     Route: 048
     Dates: start: 20180124
  37. BLINDED TRILACICLIB [Suspect]
     Active Substance: TRILACICLIB
     Indication: BONE MARROW FAILURE
     Dosage: INDUCTION DAY 1 CYCLE 1.?START TIME INFUSION 10:56, END TIME INFUSION 11:27
     Route: 042
     Dates: start: 20170902
  38. CARBOPLATIN. [Suspect]
     Active Substance: CARBOPLATIN
     Indication: SMALL CELL LUNG CANCER
     Dosage: (AUC = 5 MILLIGRAMS PER MILLILITER PER MINUTE) AND 25/SEP/2017?INDUCTION DAY 1, CYCLE 1,?START TIME
     Route: 042
     Dates: start: 20170902
  39. DEXAMETHASONE. [Concomitant]
     Active Substance: DEXAMETHASONE
     Indication: LUNG INFILTRATION
     Route: 048
     Dates: start: 20170903
  40. ENOXAPARIN [Concomitant]
     Active Substance: ENOXAPARIN
     Route: 058
     Dates: start: 20171219, end: 20171222
  41. STRATTERA [Concomitant]
     Active Substance: ATOMOXETINE HYDROCHLORIDE
     Route: 065
     Dates: start: 20170903
  42. XANAX [Concomitant]
     Active Substance: ALPRAZOLAM
     Indication: ANXIETY
     Route: 048
     Dates: start: 20180124
  43. GUAIFENESIN. [Concomitant]
     Active Substance: GUAIFENESIN
     Route: 048
     Dates: start: 20171219, end: 20171222
  44. PREDNISONE. [Concomitant]
     Active Substance: PREDNISONE
     Route: 048
     Dates: start: 20171219, end: 20171222
  45. ATEZOLIZUMAB. [Suspect]
     Active Substance: ATEZOLIZUMAB
     Indication: SMALL CELL LUNG CANCER
     Dosage: INDUCTION DAY 1 CYCLE 1.?INFUSION START TIME 14:08, END TIME INFUSION 15:09?DAY 1 OF EACH 21-DAY CYC
     Route: 042
     Dates: start: 20170902
  46. VANCOMYCIN [Concomitant]
     Active Substance: VANCOMYCIN
     Indication: PNEUMONIA
     Route: 042
     Dates: start: 20170824, end: 20170831
  47. ZYVOX [Concomitant]
     Active Substance: LINEZOLID
     Indication: PROPHYLAXIS
     Route: 042
     Dates: start: 20170903
  48. SODIUM PHOSPHATE [Concomitant]
     Active Substance: SODIUM PHOSPHATE
     Route: 048
     Dates: start: 20170903
  49. KEPPRA [Concomitant]
     Active Substance: LEVETIRACETAM
     Indication: METASTASES TO CENTRAL NERVOUS SYSTEM
     Route: 048
     Dates: start: 20171227
  50. LORAZEPAM. [Concomitant]
     Active Substance: LORAZEPAM
     Route: 042
     Dates: start: 20171219, end: 20171223

REACTIONS (3)
  - Respiratory distress [Recovered/Resolved]
  - Pneumonia [Recovered/Resolved]
  - Pneumonitis [Not Recovered/Not Resolved]

NARRATIVE: CASE EVENT DATE: 20170903
